FAERS Safety Report 9746034 (Version 2)
Quarter: 2014Q4

REPORT INFORMATION
  Report Type: Report from Study
  Country: FR (occurrence: FR)
  Receive Date: 20131211
  Receipt Date: 20141124
  Transmission Date: 20150529
  Serious: Yes (Death, Hospitalization, Other)
  Sender: FDA-Public Use
  Company Number: FR-TEVA-449639USA

PATIENT
  Age: 61 Year
  Sex: Male

DRUGS (16)
  1. DEXAMETHASONE. [Suspect]
     Active Substance: DEXAMETHASONE
     Dates: start: 20130125
  2. VORICONAZOLE. [Concomitant]
     Active Substance: VORICONAZOLE
     Dates: start: 20130306
  3. FILGRASTIM [Concomitant]
     Active Substance: FILGRASTIM
     Dates: start: 20130513
  4. BENDAMUSTINE [Suspect]
     Active Substance: BENDAMUSTINE
     Dates: start: 20130805
  5. VELCADE [Suspect]
     Active Substance: BORTEZOMIB
     Dates: start: 20120905, end: 20130117
  6. REVLIMID [Suspect]
     Active Substance: LENALIDOMIDE
     Indication: PLASMA CELL MYELOMA
     Dates: start: 20110520, end: 20111120
  7. TIEMAN [Concomitant]
     Dates: start: 20130513
  8. EPOETIN BETA [Concomitant]
     Active Substance: ERYTHROPOIETIN
     Indication: PRODUCT USED FOR UNKNOWN INDICATION
     Dates: start: 201301
  9. VORICONAZOLE. [Concomitant]
     Active Substance: VORICONAZOLE
     Dates: start: 201305
  10. CILASTATIN SODIUM [Concomitant]
     Active Substance: CILASTATIN SODIUM
     Dates: start: 20130513
  11. VELCADE [Suspect]
     Active Substance: BORTEZOMIB
     Indication: PLASMA CELL MYELOMA
     Dates: start: 20110520, end: 20111120
  12. VELCADE [Suspect]
     Active Substance: BORTEZOMIB
     Dates: start: 20130503
  13. DEXAMETHASONE. [Suspect]
     Active Substance: DEXAMETHASONE
     Indication: PLASMA CELL MYELOMA
     Dates: start: 20110520, end: 20111120
  14. DEXAMETHASONE. [Suspect]
     Active Substance: DEXAMETHASONE
     Dates: start: 20120905, end: 20130117
  15. POMALIDOMIDE [Suspect]
     Active Substance: POMALIDOMIDE
     Indication: PLASMA CELL MYELOMA
     Dates: start: 20130125
  16. BENDAMUSTINE [Suspect]
     Active Substance: BENDAMUSTINE
     Indication: PLASMA CELL MYELOMA
     Dates: start: 20120905, end: 20130617

REACTIONS (3)
  - Febrile bone marrow aplasia [Recovered/Resolved]
  - Anaemia [Fatal]
  - Pyrexia [Recovered/Resolved]

NARRATIVE: CASE EVENT DATE: 20130511
